FAERS Safety Report 14610005 (Version 1)
Quarter: 2018Q1

REPORT INFORMATION
  Report Type: Spontaneous
  Country: US (occurrence: US)
  Receive Date: 20180307
  Receipt Date: 20180307
  Transmission Date: 20180509
  Serious: No
  Sender: FDA-Public Use
  Company Number: US-ACTELION-A-US2018-168391

PATIENT
  Age: 14 Year
  Sex: Female

DRUGS (2)
  1. ZAVESCA [Suspect]
     Active Substance: MIGLUSTAT
     Indication: GAUCHER^S DISEASE
     Dosage: 100 MG, BID
     Route: 049
     Dates: start: 20101130
  2. CALCIUM [Concomitant]
     Active Substance: CALCIUM
     Dosage: 1 BY MOUTH AS DIRECTED
     Dates: start: 20100927

REACTIONS (1)
  - Pseudomonas infection [Unknown]
